FAERS Safety Report 10647111 (Version 1)
Quarter: 2014Q4

REPORT INFORMATION
  Report Type: Spontaneous
  Country: US (occurrence: US)
  Receive Date: 20141211
  Receipt Date: 20141211
  Transmission Date: 20150529
  Serious: No
  Sender: FDA-Public Use
  Company Number: US-INCYTE CORPORATION-2014IN002580

PATIENT
  Age: 81 Year
  Sex: Male

DRUGS (9)
  1. SIMVASTATIN. [Concomitant]
     Active Substance: SIMVASTATIN
  2. VITAMIN D3 [Concomitant]
     Active Substance: CHOLECALCIFEROL
  3. LEVOTHYROXINE [Concomitant]
     Active Substance: LEVOTHYROXINE
  4. FUROSEMIDE. [Concomitant]
     Active Substance: FUROSEMIDE
  5. JAKAFI [Suspect]
     Active Substance: RUXOLITINIB
     Indication: MYELOFIBROSIS
     Dosage: 20 MG, BID
     Route: 048
     Dates: start: 20140702
  6. ALLOPURINOL. [Concomitant]
     Active Substance: ALLOPURINOL
  7. MULTIVITAMIN                       /00097801/ [Concomitant]
     Active Substance: VITAMINS
  8. METOPROLOL [Concomitant]
     Active Substance: METOPROLOL
  9. ASPIRIN. [Concomitant]
     Active Substance: ASPIRIN

REACTIONS (5)
  - Eye irritation [Unknown]
  - Contusion [Unknown]
  - Alopecia [Unknown]
  - Dry eye [Unknown]
  - Pain [Unknown]

NARRATIVE: CASE EVENT DATE: 20140910
